FAERS Safety Report 18298146 (Version 2)
Quarter: 2020Q3

REPORT INFORMATION
  Report Type: Spontaneous
  Country: ES (occurrence: ES)
  Receive Date: 20200922
  Receipt Date: 20200930
  Transmission Date: 20201103
  Serious: Yes (Other)
  Sender: FDA-Public Use
  Company Number: ES-MYLANLABS-2020M1079374

PATIENT
  Age: 26 Year
  Sex: Female

DRUGS (1)
  1. ADALIMUMAB [Suspect]
     Active Substance: ADALIMUMAB
     Indication: HIDRADENITIS
     Dosage: 80 MILLIGRAM, Q2WK
     Route: 058
     Dates: start: 201901, end: 2019

REACTIONS (10)
  - Back pain [Recovered/Resolved]
  - Sacroiliitis [Recovered/Resolved]
  - Dermatitis psoriasiform [Recovered/Resolved]
  - Therapeutic product effect decreased [Unknown]
  - Palmoplantar pustulosis [Recovered/Resolved]
  - Psoriasis [Recovered/Resolved]
  - Skin injury [Unknown]
  - Paradoxical drug reaction [Recovered/Resolved]
  - Alopecia areata [Recovering/Resolving]
  - Psoriatic arthropathy [Recovered/Resolved]

NARRATIVE: CASE EVENT DATE: 2019
